FAERS Safety Report 24353404 (Version 1)
Quarter: 2024Q3

REPORT INFORMATION
  Report Type: Spontaneous
  Country: FR (occurrence: FR)
  Receive Date: 20240923
  Receipt Date: 20240923
  Transmission Date: 20241017
  Serious: No
  Sender: ROCHE
  Company Number: FR-ROCHE-3455537

PATIENT
  Age: 87 Year
  Sex: Male

DRUGS (2)
  1. HERCEPTIN [Suspect]
     Active Substance: TRASTUZUMAB
     Indication: Metastatic carcinoma of the bladder
     Dosage: 2ND AND SUBSEQUENT ONES WERE 6 MG/KG
     Route: 041
     Dates: start: 202301, end: 202305
  2. LAPATINIB [Suspect]
     Active Substance: LAPATINIB
     Indication: Metastatic carcinoma of the bladder
     Dosage: 2ND AND SUBSEQUENT ONES WERE 6 MG/KG
     Route: 065
     Dates: start: 202301, end: 202305

REACTIONS (2)
  - Off label use [Unknown]
  - No adverse event [Unknown]
